FAERS Safety Report 8468189-5 (Version None)
Quarter: 2012Q2

REPORT INFORMATION
  Report Type: 
  Country: None (occurrence: None)
  Receive Date: 20120626
  Receipt Date: 20120614
  Transmission Date: 20120825
  Serious: Yes (Other)
  Sender: FDA-Public Use
  Company Number: AU-ROCHE-1081194

PATIENT
  Age: 50 Year
  Sex: Male

DRUGS (5)
  1. CAPECITABINE [Suspect]
     Indication: COLON CANCER
     Route: 048
  2. BEVACIZUMAB [Suspect]
     Indication: COLON CANCER
     Route: 042
  3. ONDANSETRON HYDROCHLORIDE [Concomitant]
     Dosage: DRUG REPORTED AS ONDANSETRON HYDROCHLORIDE DIHYDRATE
  4. OXALIPLATIN [Suspect]
     Indication: COLON CANCER
     Route: 042
  5. DEXAMETHASONE [Concomitant]

REACTIONS (3)
  - RETINAL VEIN THROMBOSIS [None]
  - PAPILLOEDEMA [None]
  - PUPILLARY REFLEX IMPAIRED [None]
